FAERS Safety Report 7928200-4 (Version None)
Quarter: 2011Q4

REPORT INFORMATION
  Report Type: 
  Country: None (occurrence: None)
  Receive Date: 20111118
  Receipt Date: 20111111
  Transmission Date: 20120403
  Serious: Yes (Hospitalization)
  Sender: FDA-Public Use
  Company Number: CA-JNJFOC-20101002146

PATIENT
  Age: 46 Year
  Sex: Female
  Weight: 81.65 kg

DRUGS (8)
  1. TYLENOL AND CODEINE [Concomitant]
     Indication: ANALGESIC THERAPY
     Route: 048
     Dates: start: 20030203
  2. CYCLOBENZAPRINE [Concomitant]
     Indication: ANALGESIC THERAPY
     Route: 048
     Dates: start: 20071123
  3. CYCLOBENZAPRINE [Concomitant]
     Route: 048
     Dates: start: 20100501
  4. GOLIMUMAB [Suspect]
     Indication: RHEUMATOID ARTHRITIS
     Route: 058
     Dates: start: 20100428
  5. DILTIAZEM HCL [Concomitant]
     Indication: HYPERTENSION
     Route: 048
     Dates: start: 20050203
  6. METHOTREXATE [Concomitant]
     Indication: RHEUMATOID ARTHRITIS
     Route: 048
     Dates: start: 20080618
  7. DILAUDID [Concomitant]
     Indication: ANALGESIC THERAPY
     Route: 048
     Dates: start: 20080128
  8. TYLENOL AND CODEINE [Concomitant]
     Route: 048
     Dates: start: 20071123

REACTIONS (1)
  - RECTAL HAEMORRHAGE [None]
